FAERS Safety Report 4641196-6 (Version None)
Quarter: 2005Q2

REPORT INFORMATION
  Report Type: 
  Country: None (occurrence: None)
  Receive Date: 20050419
  Receipt Date: 20050419
  Transmission Date: 20051028
  Serious: Yes (Other)
  Sender: FDA-Public Use
  Company Number: None

PATIENT
  Age: 18 Year
  Sex: Female
  Weight: 56.6996 kg

DRUGS (1)
  1. ZOLOFT [Suspect]

REACTIONS (8)
  - ABNORMAL BEHAVIOUR [None]
  - CONDITION AGGRAVATED [None]
  - DRUG INEFFECTIVE [None]
  - EDUCATIONAL PROBLEM [None]
  - FEELING ABNORMAL [None]
  - PANIC ATTACK [None]
  - PARANOIA [None]
  - PERSONALITY DISORDER [None]
